FAERS Safety Report 23379638 (Version 1)
Quarter: 2024Q1

REPORT INFORMATION
  Report Type: Spontaneous
  Country: US (occurrence: US)
  Receive Date: 20240108
  Receipt Date: 20240108
  Transmission Date: 20240410
  Serious: Yes (Other)
  Sender: FDA-Public Use
  Company Number: US-BEH-2024167130

PATIENT
  Age: 57 Year
  Sex: Female

DRUGS (4)
  1. HIZENTRA [Suspect]
     Active Substance: HUMAN IMMUNOGLOBULIN G
     Indication: Selective IgG subclass deficiency
     Dosage: 1 GRAM, QW
     Route: 058
     Dates: start: 202303
  2. HIZENTRA [Suspect]
     Active Substance: HUMAN IMMUNOGLOBULIN G
     Dosage: 8 GRAM, QW
     Route: 058
     Dates: start: 202303
  3. FASENRA [Concomitant]
     Active Substance: BENRALIZUMAB
     Dosage: UNK, AT WEEK 8 THEN EVERY 8 WEEKS THEREAFTER
  4. PAROXETINE [Concomitant]
     Active Substance: PAROXETINE

REACTIONS (1)
  - Haemorrhage [Unknown]
